FAERS Safety Report 23189245 (Version 1)
Quarter: 2023Q4

REPORT INFORMATION
  Report Type: Spontaneous
  Country: US (occurrence: US)
  Receive Date: 20231115
  Receipt Date: 20231115
  Transmission Date: 20240109
  Serious: No
  Sender: FDA-Public Use
  Company Number: US-drreddys-SPO/USA/23/0179545

PATIENT
  Age: 29 Year
  Sex: Female

DRUGS (2)
  1. ACCUTANE [Suspect]
     Active Substance: ISOTRETINOIN
     Indication: Product used for unknown indication
     Dosage: RMA ISSUE DATE:21 MARCH 2023 04:58:13 PM
  2. ACCUTANE [Suspect]
     Active Substance: ISOTRETINOIN
     Dosage: RMA ISSUE DATE: 09 AUGUST 2023 09:13:52 AM, 03 JUNE 2023 12:30:36 PM, 26 APRIL 2023 03:37:48 PM.

REACTIONS (1)
  - Treatment noncompliance [Unknown]
